FAERS Safety Report 7438013-8 (Version None)
Quarter: 2011Q2

REPORT INFORMATION
  Report Type: 
  Country: None (occurrence: None)
  Receive Date: 20110426
  Receipt Date: 20100907
  Transmission Date: 20111010
  Serious: No
  Sender: FDA-Public Use
  Company Number: US-MYLANLABS-2010S1013731

PATIENT
  Age: 36 Year
  Sex: Female

DRUGS (2)
  1. NITROFURANTOIN [Suspect]
     Indication: URINARY TRACT INFECTION
     Route: 048
     Dates: start: 20100601, end: 20100601
  2. ACYCLOVIR [Concomitant]
     Dates: start: 20100601

REACTIONS (5)
  - PAIN [None]
  - MUSCLE TWITCHING [None]
  - HERPES SIMPLEX [None]
  - POLYNEUROPATHY [None]
  - SUNBURN [None]
